FAERS Safety Report 22053527 (Version 1)
Quarter: 2023Q1

REPORT INFORMATION
  Report Type: Spontaneous
  Country: US (occurrence: US)
  Receive Date: 20230302
  Receipt Date: 20230302
  Transmission Date: 20230418
  Serious: No
  Sender: FDA-Public Use
  Company Number: US-MLMSERVICE-20230209-4095715-1

PATIENT
  Age: 25 Year
  Sex: Female

DRUGS (7)
  1. MOXIFLOXACIN [Suspect]
     Active Substance: MOXIFLOXACIN
     Route: 048
  2. AZITHROMYCIN [Concomitant]
     Active Substance: AZITHROMYCIN
     Indication: Mycobacterium abscessus infection
     Dosage: 500 MG
     Route: 048
  3. AZITHROMYCIN [Concomitant]
     Active Substance: AZITHROMYCIN
     Indication: Mycobacterium chelonae infection
  4. AMIKACIN [Concomitant]
     Active Substance: AMIKACIN
     Indication: Mycobacterium chelonae infection
     Dosage: ON MONDAY, WEDNESDAY, AND FRIDAY
     Route: 042
  5. AMIKACIN [Concomitant]
     Active Substance: AMIKACIN
     Indication: Mycobacterium abscessus infection
  6. TIGECYCLINE [Concomitant]
     Active Substance: TIGECYCLINE
     Indication: Mycobacterium abscessus infection
     Dosage: 50 MG
     Route: 042
  7. TIGECYCLINE [Concomitant]
     Active Substance: TIGECYCLINE
     Indication: Mycobacterium chelonae infection

REACTIONS (1)
  - Gastrointestinal disorder [Unknown]
